FAERS Safety Report 4453791-8 (Version None)
Quarter: 2004Q3

REPORT INFORMATION
  Report Type: 
  Country: None (occurrence: None)
  Receive Date: 20040902
  Receipt Date: 20040617
  Transmission Date: 20050211
  Serious: No
  Sender: FDA-Public Use
  Company Number: 200418436BWH

PATIENT
  Age: 23 Year
  Sex: Male
  Weight: 92.9874 kg

DRUGS (1)
  1. LEVITRA [Suspect]
     Dosage: 10 MG, TOTAL DAILY, ORAL
     Route: 048
     Dates: start: 20040617

REACTIONS (2)
  - DIARRHOEA [None]
  - VOMITING [None]
